FAERS Safety Report 8375983-8 (Version None)
Quarter: 2012Q2

REPORT INFORMATION
  Report Type: 
  Country: None (occurrence: None)
  Receive Date: 20120522
  Receipt Date: 20120511
  Transmission Date: 20120825
  Serious: Yes (Hospitalization)
  Sender: FDA-Public Use
  Company Number: DE-MPIJNJ-2012-02413

PATIENT

DRUGS (3)
  1. PAMIFOS [Concomitant]
     Indication: NEPHROTIC SYNDROME
  2. VELCADE [Suspect]
     Indication: AMYLOIDOSIS
     Dosage: 1.3 MG/M2, UNK
     Route: 042
     Dates: start: 20120326, end: 20120402
  3. DEXAMETHASONE [Concomitant]
     Indication: NEPHROTIC SYNDROME

REACTIONS (1)
  - STRESS CARDIOMYOPATHY [None]
